FAERS Safety Report 5964783-1 (Version None)
Quarter: 2008Q4

REPORT INFORMATION
  Report Type: 
  Country: None (occurrence: None)
  Receive Date: 20081125
  Receipt Date: 20081117
  Transmission Date: 20090506
  Serious: Yes (Other)
  Sender: FDA-Public Use
  Company Number: US-PURDUE-USA_2008_0035399

PATIENT
  Age: 48 Year
  Sex: Male

DRUGS (2)
  1. DILAUDID [Concomitant]
     Indication: BREAKTHROUGH PAIN
     Dosage: 8 MG, SEE TEXT
  2. OXYCONTIN [Suspect]
     Indication: CLUSTER HEADACHE
     Dosage: UNK, SEE TEXT

REACTIONS (2)
  - DRUG DEPENDENCE [None]
  - PAIN [None]
